FAERS Safety Report 5104240-8 (Version None)
Quarter: 2006Q3

REPORT INFORMATION
  Report Type: 
  Country: None (occurrence: None)
  Receive Date: 20060911
  Receipt Date: 20060824
  Transmission Date: 20061208
  Serious: Yes (Other)
  Sender: FDA-Public Use
  Company Number: 2006-BP-09928RO

PATIENT
  Age: 55 Year
  Sex: Female

DRUGS (1)
  1. FLUCONAZOLE [Suspect]
     Indication: PNEUMONIA
     Dosage: 200 MG X 1 DOSE (NR), IV
     Route: 042

REACTIONS (2)
  - SYNCOPE [None]
  - TORSADE DE POINTES [None]
